FAERS Safety Report 7009698-5 (Version None)
Quarter: 2010Q3

REPORT INFORMATION
  Report Type: 
  Country: None (occurrence: None)
  Receive Date: 20100923
  Receipt Date: 20100916
  Transmission Date: 20110219
  Serious: Yes (Other)
  Sender: FDA-Public Use
  Company Number: FR-PFIZER INC-2010103056

PATIENT
  Age: 64 Year
  Sex: Male

DRUGS (2)
  1. TAHOR [Suspect]
     Indication: HYPERTRIGLYCERIDAEMIA
     Dosage: 10 MG, 1X/DAY
     Route: 048
     Dates: start: 20070706, end: 20100814
  2. TAHOR [Suspect]
     Indication: HYPERCHOLESTEROLAEMIA

REACTIONS (6)
  - BLOOD CREATINE PHOSPHOKINASE INCREASED [None]
  - HYPERLIPASAEMIA [None]
  - MUSCLE SPASMS [None]
  - MYALGIA [None]
  - NAUSEA [None]
  - VERTIGO [None]
